FAERS Safety Report 6506419-7 (Version None)
Quarter: 2009Q4

REPORT INFORMATION
  Report Type: 
  Country: None (occurrence: None)
  Receive Date: 20091221
  Receipt Date: 20091210
  Transmission Date: 20100525
  Serious: Yes (Other)
  Sender: FDA-Public Use
  Company Number: GB-RB-026624-09

PATIENT
  Age: 24 Hour

DRUGS (3)
  1. SUBUTEX [Suspect]
     Indication: DRUG EXPOSURE DURING PREGNANCY
     Dosage: MOTHER TOOK 10 MG DAILY
     Route: 064
  2. OLANZAPINE [Suspect]
     Indication: DRUG USE FOR UNKNOWN INDICATION
     Dosage: UNKNOWN DOSING DETAILS
     Route: 064
  3. DIAZEPAM [Suspect]
     Indication: DRUG USE FOR UNKNOWN INDICATION
     Dosage: UNKNOWN DOSING DETAILS
     Route: 064

REACTIONS (2)
  - DRUG EXPOSURE DURING PREGNANCY [None]
  - PERINATAL BRAIN DAMAGE [None]
